FAERS Safety Report 5399807-6 (Version None)
Quarter: 2007Q3

REPORT INFORMATION
  Report Type: 
  Country: None (occurrence: None)
  Receive Date: 20070730
  Receipt Date: 20070719
  Transmission Date: 20080115
  Serious: Yes (Other)
  Sender: FDA-Public Use
  Company Number: IT-ELI_LILLY_AND_COMPANY-IT200705005741

PATIENT
  Age: 36 Year
  Sex: Female

DRUGS (5)
  1. ZYPREXA [Suspect]
     Indication: SCHIZOAFFECTIVE DISORDER
     Dosage: 15 MG, DAILY (1/D)
     Route: 048
  2. ZYPREXA [Suspect]
     Dosage: 20 MG, DAILY (1/D)
     Route: 048
     Dates: start: 20070301
  3. ELOPRAM [Concomitant]
     Dosage: 10 MG, UNK
     Dates: end: 20070510
  4. DEPAKOTE [Concomitant]
  5. PAROXETINE [Concomitant]

REACTIONS (2)
  - EPILEPSY [None]
  - GALACTORRHOEA [None]
